FAERS Safety Report 5455558-0 (Version None)
Quarter: 2007Q3

REPORT INFORMATION
  Report Type: 
  Country: None (occurrence: None)
  Receive Date: 20070914
  Receipt Date: 20070830
  Transmission Date: 20080115
  Serious: Yes (Other)
  Sender: FDA-Public Use
  Company Number: 2007-04081

PATIENT
  Sex: Female

DRUGS (1)
  1. FLUOXETINE [Suspect]

REACTIONS (5)
  - CARDIAC FAILURE CONGESTIVE [None]
  - DIZZINESS [None]
  - HYPOTENSION [None]
  - PNEUMONIA [None]
  - RENAL FAILURE ACUTE [None]
